FAERS Safety Report 9630330 (Version 2)
Quarter: 2013Q4

REPORT INFORMATION
  Report Type: Spontaneous
  Country: FR (occurrence: FR)
  Receive Date: 20131018
  Receipt Date: 20131025
  Transmission Date: 20140711
  Serious: Yes (Death, Hospitalization)
  Sender: FDA-Public Use
  Company Number: FR-ROCHE-1289954

PATIENT
  Age: 82 Year
  Sex: Female

DRUGS (11)
  1. MABTHERA [Suspect]
     Indication: NON-HODGKIN^S LYMPHOMA
     Route: 041
     Dates: start: 20130909, end: 20130909
  2. ENDOXAN [Suspect]
     Indication: NON-HODGKIN^S LYMPHOMA
     Route: 042
     Dates: start: 20130909, end: 20130909
  3. DOXORUBICINE [Suspect]
     Indication: NON-HODGKIN^S LYMPHOMA
     Route: 042
     Dates: start: 20130909, end: 20130909
  4. VINCRISTINE [Suspect]
     Indication: NON-HODGKIN^S LYMPHOMA
     Route: 042
     Dates: start: 20130909, end: 20130909
  5. ARIXTRA [Suspect]
     Indication: PRODUCT USED FOR UNKNOWN INDICATION
     Dosage: 2.5 MG/0.5 ML
     Route: 058
     Dates: end: 20130914
  6. CORDARONE [Concomitant]
  7. LEVOTHYROX [Concomitant]
  8. HUMALOG [Concomitant]
  9. LANTUS [Concomitant]
  10. ARIXTRA [Concomitant]
  11. PREDNISONE [Concomitant]
     Route: 065
     Dates: start: 20130909

REACTIONS (2)
  - Thrombocytopenia [Fatal]
  - Shock haemorrhagic [Fatal]
